FAERS Safety Report 20937721 (Version 1)
Quarter: 2022Q2

REPORT INFORMATION
  Report Type: Spontaneous
  Country: US (occurrence: None)
  Receive Date: 20220608
  Receipt Date: 20220608
  Transmission Date: 20220721
  Serious: No
  Sender: FDA-Public Use
  Company Number: None

PATIENT
  Age: 67 Year
  Sex: Female
  Weight: 112.49 kg

DRUGS (1)
  1. REVLIMID [Suspect]
     Active Substance: LENALIDOMIDE
     Indication: Plasma cell myeloma
     Dosage: OTHER FREQUENCY : 3 W, 1 W OFF;?
     Route: 048
     Dates: start: 20200901, end: 20220602

REACTIONS (6)
  - Dizziness [None]
  - Dizziness [None]
  - Musculoskeletal stiffness [None]
  - Nervousness [None]
  - Tremor [None]
  - Therapy cessation [None]
